FAERS Safety Report 20076886 (Version 1)
Quarter: 2021Q4

REPORT INFORMATION
  Report Type: Spontaneous
  Country: US (occurrence: US)
  Receive Date: 20211116
  Receipt Date: 20211116
  Transmission Date: 20220303
  Serious: No
  Sender: FDA-Public Use
  Company Number: US-PFIZER INC-202101467640

PATIENT

DRUGS (1)
  1. DEPO-PROVERA [Suspect]
     Active Substance: MEDROXYPROGESTERONE ACETATE
     Indication: Endometriosis
     Dosage: UNK(150 MG IN 1 ML)

REACTIONS (4)
  - Menstrual disorder [Unknown]
  - Pain [Unknown]
  - Drug ineffective for unapproved indication [Unknown]
  - Off label use [Unknown]
